FAERS Safety Report 12327967 (Version 1)
Quarter: 2016Q2

REPORT INFORMATION
  Report Type: Spontaneous
  Country: US (occurrence: None)
  Receive Date: 20160502
  Receipt Date: 20160502
  Transmission Date: 20160815
  Serious: Yes (Other)
  Sender: FDA-Public Use
  Company Number: None

PATIENT
  Age: 53 Year
  Sex: Female

DRUGS (1)
  1. SYNTHROID [Suspect]
     Active Substance: LEVOTHYROXINE SODIUM
     Indication: HYPOTHYROIDISM
     Dosage: 1 TABLET QD ORAL
     Route: 048

REACTIONS (6)
  - Visual impairment [None]
  - Irritability [None]
  - Rash [None]
  - Eye inflammation [None]
  - Product lot number issue [None]
  - Drug ineffective [None]

NARRATIVE: CASE EVENT DATE: 20160306
